FAERS Safety Report 19771736 (Version 2)
Quarter: 2021Q4

REPORT INFORMATION
  Report Type: Report from Study
  Country: IN (occurrence: IN)
  Receive Date: 20210901
  Receipt Date: 20211119
  Transmission Date: 20220303
  Serious: Yes (Other)
  Sender: FDA-Public Use
  Company Number: IN-ASTELLAS-2021US032005

PATIENT
  Age: 62 Year
  Sex: Male

DRUGS (4)
  1. ISAVUCONAZOLE [Suspect]
     Active Substance: ISAVUCONAZOLE
     Indication: Product used for unknown indication
     Route: 048
     Dates: start: 20210712
  2. ISAVUCONAZOLE [Suspect]
     Active Substance: ISAVUCONAZOLE
     Route: 048
     Dates: start: 20210807
  3. ZORYL [Concomitant]
     Indication: Product used for unknown indication
     Route: 065
  4. RAPITUS [Concomitant]
     Indication: Product used for unknown indication
     Dosage: UNK UNK, THRICE DAILY (2-1-2)
     Route: 065

REACTIONS (8)
  - Hypoxia [Unknown]
  - COVID-19 [Unknown]
  - Blood pressure increased [Unknown]
  - Blood glucose increased [Unknown]
  - Cough [Unknown]
  - Chest pain [Unknown]
  - Off label use [Unknown]
  - Incorrect dose administered [Unknown]

NARRATIVE: CASE EVENT DATE: 20210712
